FAERS Safety Report 8074695-8 (Version None)
Quarter: 2012Q1

REPORT INFORMATION
  Report Type: 
  Country: None (occurrence: None)
  Receive Date: 20120126
  Receipt Date: 20120120
  Transmission Date: 20120608
  Serious: Yes (Hospitalization)
  Sender: FDA-Public Use
  Company Number: FR-ROCHE-1032682

PATIENT
  Sex: Male

DRUGS (3)
  1. HERCEPTIN [Suspect]
     Indication: PRODUCT USED FOR UNKNOWN INDICATION
     Route: 042
     Dates: start: 20110615
  2. HERCEPTIN [Suspect]
     Route: 042
     Dates: start: 20110623, end: 20110804
  3. PACLITAXEL [Suspect]
     Indication: PRODUCT USED FOR UNKNOWN INDICATION
     Dosage: REPORTED AS: PACLITAXEL SANDOZ
     Route: 042
     Dates: start: 20110615

REACTIONS (4)
  - RHABDOMYOLYSIS [None]
  - GENERALISED OEDEMA [None]
  - ACUTE RESPIRATORY FAILURE [None]
  - RENAL IMPAIRMENT [None]
